FAERS Safety Report 21371997 (Version 5)
Quarter: 2022Q4

REPORT INFORMATION
  Report Type: Report from Study
  Country: FR (occurrence: FR)
  Receive Date: 20220923
  Receipt Date: 20221129
  Transmission Date: 20230112
  Serious: Yes (Other)
  Sender: FDA-Public Use
  Company Number: FR-GILEAD-2022-0598319

PATIENT
  Sex: Female
  Weight: 62 kg

DRUGS (3)
  1. SACITUZUMAB GOVITECAN [Suspect]
     Active Substance: SACITUZUMAB GOVITECAN
     Indication: Triple negative breast cancer
     Dosage: 495 MG/KG ON C1D1 C1D8
     Route: 042
     Dates: start: 20220915, end: 20220922
  2. SACITUZUMAB GOVITECAN [Suspect]
     Active Substance: SACITUZUMAB GOVITECAN
     Dosage: 8 MG/KG ON C2D1 AND C2D8
     Route: 042
     Dates: start: 20221006, end: 20221013
  3. SACITUZUMAB GOVITECAN [Suspect]
     Active Substance: SACITUZUMAB GOVITECAN
     Dosage: 9 MG/KG
     Route: 042
     Dates: end: 20221103

REACTIONS (3)
  - Presyncope [Recovered/Resolved]
  - Presyncope [Recovered/Resolved]
  - Off label use [Unknown]

NARRATIVE: CASE EVENT DATE: 20220915
